FAERS Safety Report 4924361-X (Version None)
Quarter: 2006Q1

REPORT INFORMATION
  Report Type: 
  Country: None (occurrence: None)
  Receive Date: 20060227
  Receipt Date: 20060124
  Transmission Date: 20060701
  Serious: No
  Sender: FDA-Public Use
  Company Number: US-GLAXOSMITHKLINE-A0590737A

PATIENT
  Sex: Female

DRUGS (2)
  1. WELLBUTRIN XL [Suspect]
     Indication: DEPRESSION
     Dosage: 150MG PER DAY
     Route: 048
     Dates: start: 20060101
  2. FENTANYL CITRATE [Suspect]
     Dosage: 75MCG TWO TIMES PER WEEK
     Route: 062

REACTIONS (2)
  - ANXIETY [None]
  - DRUG INTERACTION [None]
